FAERS Safety Report 7680278-1 (Version None)
Quarter: 2011Q3

REPORT INFORMATION
  Report Type: 
  Country: None (occurrence: None)
  Receive Date: 20110812
  Receipt Date: 20110804
  Transmission Date: 20111222
  Serious: Yes (Death, Hospitalization, Other)
  Sender: FDA-Public Use
  Company Number: JP-CEPHALON-2011002518

PATIENT
  Sex: Male
  Weight: 48 kg

DRUGS (11)
  1. DEXAMETHASONE SODIUM PHOSPHATE [Concomitant]
     Dates: start: 20110117, end: 20110408
  2. FLUCONAZOLE [Concomitant]
  3. DEXAMETHASONE [Concomitant]
     Dates: end: 20110314
  4. BROTIZOLAM [Concomitant]
  5. PALONOSETRON HYDROCHLORIDE [Concomitant]
     Dates: start: 20110117, end: 20110207
  6. ALLOPURINOL [Concomitant]
     Dates: end: 20110408
  7. LAFUTIDINE [Concomitant]
  8. BENDAMUSTINE HCL [Suspect]
     Indication: B-CELL LYMPHOMA
     Route: 042
     Dates: start: 20110117, end: 20110118
  9. BENDAMUSTINE HCL [Suspect]
     Route: 042
     Dates: start: 20110207, end: 20110208
  10. ACYCLOVIR [Concomitant]
     Dates: end: 20110408
  11. SULFAMETHOXAZOLE AND TRIMETHOPRIM [Concomitant]

REACTIONS (10)
  - DISEASE PROGRESSION [None]
  - LYMPHOCYTE COUNT DECREASED [None]
  - NEUTROPHIL COUNT DECREASED [None]
  - ANAL ABSCESS [None]
  - GINGIVITIS [None]
  - ANAEMIA [None]
  - BLOOD UREA INCREASED [None]
  - C-REACTIVE PROTEIN INCREASED [None]
  - HAEMORRHOIDS [None]
  - STOMATITIS [None]
